FAERS Safety Report 8474348-8 (Version None)
Quarter: 2012Q2

REPORT INFORMATION
  Report Type: 
  Country: None (occurrence: None)
  Receive Date: 20120628
  Receipt Date: 20120625
  Transmission Date: 20120825
  Serious: Yes (Hospitalization)
  Sender: FDA-Public Use
  Company Number: FR-AMGEN-FRACT2012021564

PATIENT
  Age: 68 Year
  Sex: Female
  Weight: 67 kg

DRUGS (9)
  1. RANITIDINE [Concomitant]
     Dosage: 50 MG, UNK
     Route: 042
     Dates: start: 20111209, end: 20120224
  2. CALCIUM [Concomitant]
     Dosage: 500 MG, UNK
     Route: 048
     Dates: start: 20111127
  3. PRIMPERAN TAB [Concomitant]
     Dosage: 10 MG, UNK
     Route: 042
     Dates: start: 20111209, end: 20120113
  4. PLITICAN [Concomitant]
     Dosage: UNK UNK, UNK
     Route: 048
     Dates: start: 20111031
  5. POLARAMINE [Concomitant]
     Dosage: 5 UNK, UNK
     Dates: start: 20111209, end: 20120224
  6. DEXAMETHASONE [Concomitant]
     Dosage: 20 MG, UNK
     Route: 042
     Dates: start: 20111209, end: 20120224
  7. DENOSUMAB [Suspect]
     Indication: BREAST CANCER
     Dosage: 120 MG, UNK
     Route: 058
     Dates: start: 20110916
  8. KYTRIL [Concomitant]
     Dosage: 2 MG, UNK
     Route: 048
     Dates: start: 20111209, end: 20120224
  9. VITAMIN D [Concomitant]
     Dosage: 400 IU, UNK
     Route: 048
     Dates: start: 20111127

REACTIONS (1)
  - NON-CARDIAC CHEST PAIN [None]
